FAERS Safety Report 21786784 (Version 1)
Quarter: 2022Q4

REPORT INFORMATION
  Report Type: Spontaneous
  Country: QA (occurrence: None)
  Receive Date: 20221228
  Receipt Date: 20221228
  Transmission Date: 20230112
  Serious: Yes (Other)
  Sender: FDA-Public Use
  Company Number: QA-Unichem Pharmaceuticals (USA) Inc-UCM202212-001334

PATIENT
  Age: 30 Year
  Sex: Male

DRUGS (2)
  1. DIVALPROEX SODIUM [Suspect]
     Active Substance: DIVALPROEX SODIUM
     Indication: Epilepsy
     Dosage: UNKNOWN
  2. PHENYTOIN [Suspect]
     Active Substance: PHENYTOIN
     Indication: Epilepsy
     Dosage: UNKNOWN

REACTIONS (3)
  - Brugada syndrome [Unknown]
  - Cardiac arrest [Unknown]
  - Ventricular fibrillation [Unknown]
